FAERS Safety Report 21019811 (Version 1)
Quarter: 2022Q2

REPORT INFORMATION
  Report Type: Report from Study
  Country: US (occurrence: US)
  Receive Date: 20220628
  Receipt Date: 20220628
  Transmission Date: 20220721
  Serious: Yes (Other)
  Sender: FDA-Public Use
  Company Number: US-JAZZ-2022-US-003124

PATIENT
  Sex: Female

DRUGS (1)
  1. XYWAV [Suspect]
     Active Substance: CALCIUM OXYBATE\MAGNESIUM OXYBATE\POTASSIUM OXYBATE\SODIUM OXYBATE
     Indication: Hypersomnia
     Dosage: 2.25 GRAM, BID
     Route: 048
     Dates: start: 202201

REACTIONS (16)
  - Suicidal ideation [Recovered/Resolved]
  - Tachyphrenia [Unknown]
  - Anhidrosis [Unknown]
  - Hypoaesthesia [Unknown]
  - Paraesthesia [Unknown]
  - Dizziness [Unknown]
  - Heart rate increased [Unknown]
  - Hyperhidrosis [Unknown]
  - Snoring [Unknown]
  - Dry mouth [Unknown]
  - Anxiety [Unknown]
  - Tremor [Unknown]
  - Nausea [Unknown]
  - Agitation [Unknown]
  - Drug interaction [Unknown]
  - Intentional product use issue [Unknown]
